FAERS Safety Report 8882160 (Version 2)
Quarter: 2012Q4

REPORT INFORMATION
  Report Type: Report from Study
  Country: DE (occurrence: FR)
  Receive Date: 20121105
  Receipt Date: 20121210
  Transmission Date: 20130627
  Serious: Yes (Hospitalization)
  Sender: FDA-Public Use
  Company Number: FR-BRISTOL-MYERS SQUIBB COMPANY-17080060

PATIENT
  Age: 71 Year
  Sex: Male

DRUGS (4)
  1. CETUXIMAB [Suspect]
     Indication: COLORECTAL CANCER METASTATIC
     Dosage: Recent inf: 03Apr2012
End date:03Apr2012
     Dates: start: 20120307
  2. OXALIPLATIN [Suspect]
     Indication: COLORECTAL CANCER METASTATIC
     Dosage: End date:03Apr2012
     Dates: start: 20120307
  3. FOLINIC ACID [Suspect]
     Indication: COLORECTAL CANCER METASTATIC
     Dosage: End date:03Apr2012
     Dates: start: 20120307
  4. 5-FLUOROURACIL [Suspect]
     Indication: COLORECTAL CANCER METASTATIC
     Dosage: 1DF:800mg:07mar12-03Apr12;IV Bolus
4800mg:07mar12-05Apr12;Intravenous
     Route: 040
     Dates: start: 20120307

REACTIONS (1)
  - Pulmonary embolism [Recovered/Resolved]
